FAERS Safety Report 5251416-5 (Version None)
Quarter: 2007Q1

REPORT INFORMATION
  Report Type: 
  Country: None (occurrence: None)
  Receive Date: 20070228
  Receipt Date: 20060717
  Transmission Date: 20070707
  Serious: No
  Sender: FDA-Public Use
  Company Number: US-GLAXOSMITHKLINE-A0604660A

PATIENT
  Age: 73 Year
  Sex: Male
  Weight: 89.1 kg

DRUGS (4)
  1. LAMICTAL [Suspect]
     Indication: BIPOLAR DISORDER
     Dosage: 25MG PER DAY
     Route: 048
     Dates: start: 20060428
  2. DEPAKOTE [Suspect]
     Dosage: 1250MG PER DAY
  3. BROMOCRIPTINE MESYLATE [Concomitant]
     Dosage: 5MG PER DAY
  4. SYNTHROID [Concomitant]
     Dosage: 100MCG PER DAY

REACTIONS (1)
  - HEADACHE [None]
